FAERS Safety Report 22259616 (Version 2)
Quarter: 2023Q2

REPORT INFORMATION
  Report Type: Spontaneous
  Country: PA (occurrence: PA)
  Receive Date: 20230427
  Receipt Date: 20230525
  Transmission Date: 20230722
  Serious: Yes (Other)
  Sender: FDA-Public Use
  Company Number: PA-PFIZER INC-PV202300074323

PATIENT
  Age: 58 Year
  Sex: Female

DRUGS (1)
  1. SUTENT [Suspect]
     Active Substance: SUNITINIB MALATE
     Dosage: 2 DF, DAILY (IN THE MORNING)
     Dates: start: 202106, end: 202206

REACTIONS (14)
  - Skin necrosis [Unknown]
  - Stomatitis [Unknown]
  - Skin lesion [Unknown]
  - Lip dry [Unknown]
  - Cancer pain [Unknown]
  - Infection [Unknown]
  - Neoplasm progression [Unknown]
  - COVID-19 [Unknown]
  - Abdominal pain [Unknown]
  - Amnesia [Unknown]
  - Coordination abnormal [Unknown]
  - Feeding disorder [Unknown]
  - Dysgeusia [Unknown]
  - Gait disturbance [Unknown]

NARRATIVE: CASE EVENT DATE: 20220515
